FAERS Safety Report 8220198-7 (Version None)
Quarter: 2012Q1

REPORT INFORMATION
  Report Type: 
  Country: None (occurrence: None)
  Receive Date: 20120316
  Receipt Date: 20120308
  Transmission Date: 20120608
  Serious: No
  Sender: FDA-Public Use
  Company Number: US-GDP-11412737

PATIENT
  Sex: Female

DRUGS (1)
  1. DIFFERIN [Suspect]
     Indication: ACNE
     Dosage: (TOPICAL)
     Route: 061

REACTIONS (3)
  - BLISTER [None]
  - SKIN IRRITATION [None]
  - BURNS SECOND DEGREE [None]
